FAERS Safety Report 21527918 (Version 3)
Quarter: 2022Q4

REPORT INFORMATION
  Report Type: Spontaneous
  Country: US (occurrence: US)
  Receive Date: 20221031
  Receipt Date: 20221101
  Transmission Date: 20230113
  Serious: Yes (Other)
  Sender: FDA-Public Use
  Company Number: US-PFIZER INC-202201240920

PATIENT
  Age: 74 Year
  Sex: Male

DRUGS (3)
  1. METHOTREXATE SODIUM [Suspect]
     Active Substance: METHOTREXATE SODIUM
     Indication: Neoplasm
     Dosage: 10 MG, 3X/DAY FOR 2 WEEKS
  2. METHOTREXATE SODIUM [Suspect]
     Active Substance: METHOTREXATE SODIUM
     Indication: Rheumatoid arthritis
  3. METHOTREXATE SODIUM [Suspect]
     Active Substance: METHOTREXATE SODIUM
     Indication: Psoriasis

REACTIONS (7)
  - Product administration error [Unknown]
  - Hallucination [Unknown]
  - Oropharyngeal oedema [Unknown]
  - Confusional state [Unknown]
  - Toxicity to various agents [Unknown]
  - Pyrexia [Unknown]
  - Stomatitis [Unknown]
